FAERS Safety Report 10968468 (Version 1)
Quarter: 2015Q1

REPORT INFORMATION
  Report Type: Report from Study
  Country: BR (occurrence: BR)
  Receive Date: 20150330
  Receipt Date: 20150330
  Transmission Date: 20150721
  Serious: Yes (Hospitalization)
  Sender: FDA-Public Use
  Company Number: PHHY2015BR037106

PATIENT
  Sex: Female
  Weight: 63 kg

DRUGS (1)
  1. GILENYA [Suspect]
     Active Substance: FINGOLIMOD HYDROCHLORIDE
     Indication: MULTIPLE SCLEROSIS
     Dosage: UNK UKN, UNK
     Route: 065
     Dates: start: 2014

REACTIONS (7)
  - Discomfort [Unknown]
  - Choking sensation [Not Recovered/Not Resolved]
  - Heart rate decreased [Recovering/Resolving]
  - Malaise [Recovered/Resolved]
  - Cough [Recovering/Resolving]
  - Dyspnoea [Recovering/Resolving]
  - Tachycardia [Unknown]
